FAERS Safety Report 5719381-1 (Version None)
Quarter: 2008Q2

REPORT INFORMATION
  Report Type: 
  Country: None (occurrence: None)
  Receive Date: 20080428
  Receipt Date: 20080417
  Transmission Date: 20081010
  Serious: Yes (Hospitalization)
  Sender: FDA-Public Use
  Company Number: US-KINGPHARMUSA00001-K200800446

PATIENT

DRUGS (11)
  1. ALTACE [Suspect]
     Dosage: 5 MG, QD
     Route: 048
     Dates: end: 20071031
  2. ALTACE [Suspect]
     Dosage: 1.25 MG, QD
     Dates: start: 20071105
  3. LASILIX                            /00032601/ [Suspect]
     Dosage: 40 MG, QD
     Route: 048
     Dates: end: 20071029
  4. DEROXAT [Suspect]
     Dosage: 20 MG, QD
     Route: 048
     Dates: end: 20071029
  5. STAGID [Suspect]
     Dosage: 2100 MG, QD
     Route: 048
     Dates: end: 20071029
  6. LYRICA [Concomitant]
     Dosage: 600 MG, UNK
     Route: 048
     Dates: end: 20071029
  7. ACETAMINOPHEN AND TRAMADOL HCL [Concomitant]
     Dosage: UNK, PRN
     Route: 048
     Dates: end: 20071029
  8. OMEPRAZOLE [Concomitant]
     Dosage: 20 MG, UNK
     Route: 048
     Dates: end: 20071029
  9. LODALES [Concomitant]
     Dosage: 20 MG, UNK
     Route: 048
  10. ALPRAZOLAM [Concomitant]
     Route: 048
  11. ADANCOR [Concomitant]
     Dosage: 20 MG, UNK
     Route: 048

REACTIONS (11)
  - ALCOHOLISM [None]
  - DEHYDRATION [None]
  - DISORIENTATION [None]
  - DRUG ABUSE [None]
  - GENERAL PHYSICAL HEALTH DETERIORATION [None]
  - HAEMOCONCENTRATION [None]
  - HEART SOUNDS ABNORMAL [None]
  - HYPONATRAEMIA [None]
  - IATROGENIC INJURY [None]
  - REFLEXES ABNORMAL [None]
  - RENAL IMPAIRMENT [None]
